FAERS Safety Report 25059109 (Version 1)
Quarter: 2025Q1

REPORT INFORMATION
  Report Type: Spontaneous
  Country: US (occurrence: None)
  Receive Date: 20250310
  Receipt Date: 20250310
  Transmission Date: 20250408
  Serious: Yes (Hospitalization)
  Sender: FDA-CTU
  Company Number: None

PATIENT
  Sex: Male

DRUGS (1)
  1. VYNDAMAX [Suspect]
     Active Substance: TAFAMIDIS
     Indication: Ulcer
     Dosage: FREQUENCY : DAILY;?
     Route: 048
     Dates: start: 202412

REACTIONS (5)
  - Oesophageal ulcer [None]
  - Gastric ulcer [None]
  - Haematemesis [None]
  - Haemoglobin decreased [None]
  - Thrombosis [None]
